FAERS Safety Report 16871744 (Version 1)
Quarter: 2019Q4

REPORT INFORMATION
  Report Type: Spontaneous
  Country: DE (occurrence: DE)
  Receive Date: 20191001
  Receipt Date: 20191001
  Transmission Date: 20200122
  Serious: Yes (Congenital Anomaly, Other)
  Sender: FDA-Public Use
  Company Number: DE-AUROBINDO-AUR-APL-2019-062861

PATIENT
  Age: 1 Day
  Sex: Male
  Weight: 3.79 kg

DRUGS (2)
  1. OPIPRAMOL [Concomitant]
     Active Substance: OPIPRAMOL
     Indication: ANXIETY DISORDER
     Dosage: 150 [MG/D (BIS 50) ]
     Route: 064
     Dates: start: 20180415
  2. SERTRALINE [Suspect]
     Active Substance: SERTRALINE HYDROCHLORIDE
     Indication: DEPRESSION
     Dosage: 50 MILLIGRAM, TWO TIMES A DAY (100 [MG/D (2X50) ] 2 SEPARATED DOSES)
     Route: 064
     Dates: start: 20180415

REACTIONS (1)
  - Talipes [Unknown]

NARRATIVE: CASE EVENT DATE: 20190122
